FAERS Safety Report 19002288 (Version 1)
Quarter: 2021Q1

REPORT INFORMATION
  Report Type: Report from Study
  Country: IN (occurrence: IN)
  Receive Date: 20210312
  Receipt Date: 20210312
  Transmission Date: 20210420
  Serious: Yes (Other)
  Sender: FDA-Public Use
  Company Number: IN-VIIV HEALTHCARE LIMITED-IN2021GSK059884

PATIENT

DRUGS (1)
  1. ABACAVIR SULPHATE [Suspect]
     Active Substance: ABACAVIR
     Indication: ANTIRETROVIRAL THERAPY
     Dosage: UNK

REACTIONS (1)
  - Drug-induced liver injury [Unknown]
